FAERS Safety Report 14614070 (Version 1)
Quarter: 2018Q1

REPORT INFORMATION
  Report Type: Spontaneous
  Country: US (occurrence: US)
  Receive Date: 20180308
  Receipt Date: 20180308
  Transmission Date: 20180509
  Serious: Yes (Hospitalization)
  Sender: FDA-Public Use
  Company Number: None

PATIENT
  Age: 76 Year
  Sex: Male
  Weight: 76.8 kg

DRUGS (2)
  1. BENDAMUSTINE HYDROCHLORIDE. [Suspect]
     Active Substance: BENDAMUSTINE HYDROCHLORIDE
     Dates: end: 20161003
  2. RITUXIMAB (MOAB C2B8 ANTI CD20, CHIMERIC) [Suspect]
     Active Substance: RITUXIMAB
     Dates: end: 20160903

REACTIONS (17)
  - Pedal pulse abnormal [None]
  - Venous haemorrhage [None]
  - Peripheral embolism [None]
  - Pleural effusion [None]
  - Supraventricular extrasystoles [None]
  - Wound infection staphylococcal [None]
  - Peripheral ischaemia [None]
  - Haemoglobin decreased [None]
  - Post procedural haematoma [None]
  - Blood creatine phosphokinase increased [None]
  - Sepsis [None]
  - Troponin increased [None]
  - Rhabdomyolysis [None]
  - Peripheral artery occlusion [None]
  - Musculoskeletal disorder [None]
  - Vomiting [None]
  - Pyrexia [None]

NARRATIVE: CASE EVENT DATE: 20171016
